FAERS Safety Report 26017763 (Version 3)
Quarter: 2025Q4

REPORT INFORMATION
  Report Type: Report from Study
  Country: EU (occurrence: EU)
  Receive Date: 20251110
  Receipt Date: 20251223
  Transmission Date: 20260118
  Serious: Yes (Hospitalization)
  Sender: ALEXION PHARMACEUTICALS
  Company Number: EU-ASTRAZENECA-202510GLO029741ES

PATIENT
  Age: 66 Year
  Sex: Female
  Weight: 88 kg

DRUGS (1)
  1. IMFINZI [Suspect]
     Active Substance: DURVALUMAB
     Dosage: 1500 EVERY 28 DAYS

REACTIONS (3)
  - Pneumonia [Not Recovered/Not Resolved]
  - Toxicity to various agents [Unknown]
  - Radiation injury [Unknown]

NARRATIVE: CASE EVENT DATE: 20251026
